FAERS Safety Report 12408073 (Version 1)
Quarter: 2016Q2

REPORT INFORMATION
  Report Type: Spontaneous
  Country: None (occurrence: US)
  Receive Date: 20160526
  Receipt Date: 20160526
  Transmission Date: 20160815
  Serious: No
  Sender: FDA-Public Use
  Company Number: US-SPEAR PHARMACEUTICALS-1052760

PATIENT
  Sex: Female

DRUGS (1)
  1. FLUOROURACIL. [Suspect]
     Active Substance: FLUOROURACIL
     Indication: ACTINIC KERATOSIS
     Route: 061
     Dates: start: 20160317, end: 20160330

REACTIONS (4)
  - Accidental exposure to product [None]
  - Tenderness [None]
  - Adverse reaction [Recovered/Resolved]
  - Eyelid disorder [None]

NARRATIVE: CASE EVENT DATE: 20160330
